FAERS Safety Report 6122036-5 (Version None)
Quarter: 2009Q1

REPORT INFORMATION
  Report Type: 
  Country: None (occurrence: None)
  Receive Date: 20090316
  Receipt Date: 20090302
  Transmission Date: 20090719
  Serious: Yes (Hospitalization)
  Sender: FDA-Public Use
  Company Number: BE-JNJFOC-20080902111

PATIENT
  Age: 69 Year
  Sex: Male

DRUGS (4)
  1. DECITABINE (DECITABINE) LYOPHILIZED POWDER [Suspect]
     Indication: MYELODYSPLASTIC SYNDROME
     Dosage: INTRAVENOUS
     Route: 042
     Dates: end: 20080904
  2. AMLOR (AMLODIPINE  BESILATE) UNSPECIFIED [Concomitant]
  3. CIPROFLOXACIN (CIPROFLOXACIN) UNSPECIFIED [Concomitant]
  4. NOXAFIL (ANTIFUNGALS FOR SYSTEMIC USE) UNSPECIFIED [Concomitant]

REACTIONS (2)
  - EPILEPSY [None]
  - LOSS OF CONSCIOUSNESS [None]
